FAERS Safety Report 9703307 (Version 4)
Quarter: 2014Q2

REPORT INFORMATION
  Report Type: Spontaneous
  Country: JP (occurrence: JP)
  Receive Date: 20131122
  Receipt Date: 20140415
  Transmission Date: 20141212
  Serious: Yes (Life-Threatening, Hospitalization)
  Sender: FDA-Public Use
  Company Number: JP-ROCHE-1305598

PATIENT
  Age: 51 Year
  Sex: Female
  Weight: 58 kg

DRUGS (3)
  1. HERCEPTIN [Suspect]
     Indication: BREAST CANCER METASTATIC
     Route: 041
     Dates: start: 20131021, end: 20131021
  2. PERJETA [Suspect]
     Indication: BREAST CANCER METASTATIC
     Dosage: STRENGTH: 420 MG/14 ML
     Route: 041
     Dates: start: 20131022, end: 20131022
  3. DOCETAXEL [Concomitant]
     Indication: BREAST CANCER METASTATIC
     Route: 041
     Dates: start: 20131022, end: 20131022

REACTIONS (1)
  - Interstitial lung disease [Recovering/Resolving]
